FAERS Safety Report 6481987-2 (Version None)
Quarter: 2009Q4

REPORT INFORMATION
  Report Type: 
  Country: None (occurrence: None)
  Receive Date: 20091208
  Receipt Date: 20090403
  Transmission Date: 20100525
  Serious: No
  Sender: FDA-Public Use
  Company Number: US-AMGEN-KDL341223

PATIENT
  Sex: Female
  Weight: 63.6 kg

DRUGS (7)
  1. ENBREL [Suspect]
     Indication: RHEUMATOID ARTHRITIS
     Route: 058
     Dates: start: 20001101
  2. FOLIC ACID [Concomitant]
  3. ASPIRIN [Concomitant]
  4. NITROFURANTOIN [Concomitant]
  5. LISINOPRIL [Concomitant]
  6. DETROL [Concomitant]
  7. UNSPECIFIED TOPICAL PRODUCT [Concomitant]

REACTIONS (4)
  - JOINT STIFFNESS [None]
  - MUSCULOSKELETAL STIFFNESS [None]
  - URETERIC STENOSIS [None]
  - URINARY TRACT INFECTION [None]
